FAERS Safety Report 7395570-8 (Version None)
Quarter: 2011Q2

REPORT INFORMATION
  Report Type: 
  Country: None (occurrence: None)
  Receive Date: 20110405
  Receipt Date: 20110330
  Transmission Date: 20111010
  Serious: Yes (Death)
  Sender: FDA-Public Use
  Company Number: PHHY2011US24805

PATIENT
  Sex: Female
  Weight: 56 kg

DRUGS (8)
  1. EXJADE [Suspect]
     Indication: IRON OVERLOAD
  2. HYDROCHLOROTHIAZIDE [Concomitant]
     Indication: AORTIC STENOSIS
  3. LEVOTHYROXINE [Concomitant]
     Indication: HYPOTHYROIDISM
  4. ALLOPURINOL [Concomitant]
     Indication: NEUROPATHY PERIPHERAL
  5. EXJADE [Suspect]
     Indication: IRON METABOLISM DISORDER
     Dosage: 500 MG, DAILY
     Route: 048
     Dates: start: 20090218, end: 20110220
  6. GABAPENTIN [Concomitant]
     Route: 048
  7. DILTIAZEM HCL [Concomitant]
     Indication: BLOOD PRESSURE INCREASED
     Route: 048
  8. METOPROLOL [Concomitant]

REACTIONS (3)
  - AORTIC STENOSIS [None]
  - MYELOPROLIFERATIVE DISORDER [None]
  - NEOPLASM MALIGNANT [None]
